FAERS Safety Report 17946493 (Version 1)
Quarter: 2020Q2

REPORT INFORMATION
  Report Type: Report from Study
  Country: CA (occurrence: CA)
  Receive Date: 20200625
  Receipt Date: 20200625
  Transmission Date: 20200714
  Serious: Yes (Other)
  Sender: FDA-Public Use
  Company Number: CA-PFIZER INC-2020244572

PATIENT
  Age: 64 Year
  Sex: Female

DRUGS (2)
  1. METHOTREXATE SODIUM. [Suspect]
     Active Substance: METHOTREXATE SODIUM
     Dosage: 15 MG
     Route: 065
  2. LEFLUNOMIDE. [Suspect]
     Active Substance: LEFLUNOMIDE
     Dosage: UNK
     Route: 065

REACTIONS (10)
  - Asthenia [Unknown]
  - Dysstasia [Unknown]
  - Drug ineffective [Unknown]
  - Gait disturbance [Unknown]
  - Drug intolerance [Unknown]
  - Latent tuberculosis [Unknown]
  - Mobility decreased [Unknown]
  - C-reactive protein increased [Unknown]
  - Pain [Unknown]
  - Joint swelling [Unknown]
